FAERS Safety Report 6072706-2 (Version None)
Quarter: 2009Q1

REPORT INFORMATION
  Report Type: 
  Country: None (occurrence: None)
  Receive Date: 20090210
  Receipt Date: 20090129
  Transmission Date: 20090719
  Serious: Yes (Hospitalization)
  Sender: FDA-Public Use
  Company Number: FR-PFIZER INC-2009157533

PATIENT

DRUGS (3)
  1. SUNITINIB MALATE [Suspect]
     Dosage: UNK
     Dates: start: 20081125
  2. IRBESARTAN [Concomitant]
     Indication: HYPERTENSION
     Route: 048
     Dates: start: 20081216
  3. SECTRAL [Concomitant]
     Indication: HYPERTENSION
     Route: 048

REACTIONS (1)
  - STATUS EPILEPTICUS [None]
